FAERS Safety Report 5537581-0 (Version None)
Quarter: 2007Q4

REPORT INFORMATION
  Report Type: 
  Country: None (occurrence: None)
  Receive Date: 20071207
  Receipt Date: 20071201
  Transmission Date: 20080405
  Serious: Yes (Other)
  Sender: FDA-Public Use
  Company Number: US-ELI_LILLY_AND_COMPANY-US200712000262

PATIENT
  Sex: Female

DRUGS (4)
  1. BYETTA [Suspect]
     Indication: TYPE 2 DIABETES MELLITUS
     Dosage: 5 UG, 2/D
     Route: 058
     Dates: start: 20061001, end: 20061101
  2. BYETTA [Suspect]
     Dosage: 10 UG, 2/D
     Route: 058
     Dates: start: 20061101, end: 20071001
  3. BYETTA [Suspect]
     Dosage: 10 UG, 3/D
     Route: 058
     Dates: start: 20071001
  4. METFORMIN HCL [Concomitant]
     Indication: TYPE 2 DIABETES MELLITUS
     Dosage: 2000 MG, DAILY (1/D)

REACTIONS (9)
  - BLOOD GLUCOSE FLUCTUATION [None]
  - EYE PAIN [None]
  - FEELING ABNORMAL [None]
  - FEELING JITTERY [None]
  - HYSTERECTOMY [None]
  - INJECTION SITE BRUISING [None]
  - OVERDOSE [None]
  - PHARMACEUTICAL PRODUCT COMPLAINT [None]
  - WEIGHT DECREASED [None]
